FAERS Safety Report 22040644 (Version 1)
Quarter: 2023Q1

REPORT INFORMATION
  Report Type: Report from Study
  Country: US (occurrence: US)
  Receive Date: 20230227
  Receipt Date: 20230227
  Transmission Date: 20230418
  Serious: Yes (Other)
  Sender: FDA-Public Use
  Company Number: US-ELI_LILLY_AND_COMPANY-US202302010431

PATIENT

DRUGS (3)
  1. GEMCITABINE HYDROCHLORIDE [Suspect]
     Active Substance: GEMCITABINE HYDROCHLORIDE
     Indication: Ovarian cancer recurrent
     Dosage: 1000 MG/M2, DAYS 1 AND 8
     Route: 065
  2. CARBOPLATIN [Concomitant]
     Active Substance: CARBOPLATIN
     Indication: Ovarian cancer recurrent
     Dosage: UNK, AUC 4 ON DAY 1
     Route: 065
  3. INIPARIB [Concomitant]
     Active Substance: INIPARIB
     Indication: Ovarian cancer recurrent
     Dosage: 5.6 MG/KG, DAYS 1, 4, 8, AND 11 EVERY 3 WEEKS (Q21) AS A 60-MIN IV
     Route: 042

REACTIONS (1)
  - Dehydration [Unknown]
